FAERS Safety Report 10245725 (Version 2)
Quarter: 2014Q3

REPORT INFORMATION
  Report Type: Spontaneous
  Country: JP (occurrence: JP)
  Receive Date: 20140619
  Receipt Date: 20140811
  Transmission Date: 20150326
  Serious: Yes (Other)
  Sender: FDA-Public Use
  Company Number: JP-009507513-1406JPN008104

PATIENT
  Age: 76 Year
  Sex: Female

DRUGS (2)
  1. TOREMIFENE CITRATE [Suspect]
     Active Substance: TOREMIFENE CITRATE
     Indication: BREAST CANCER RECURRENT
     Dosage: 120 MG, DAILY
     Route: 048
     Dates: start: 20140402, end: 20140402
  2. TOREMIFENE CITRATE [Suspect]
     Active Substance: TOREMIFENE CITRATE
     Dosage: 120 MG, DAILY
     Route: 048
     Dates: start: 20140409

REACTIONS (2)
  - Asphyxia [Recovering/Resolving]
  - Bronchitis [Recovering/Resolving]

NARRATIVE: CASE EVENT DATE: 20140402
